FAERS Safety Report 14412807 (Version 1)
Quarter: 2018Q1

REPORT INFORMATION
  Report Type: Spontaneous
  Country: US (occurrence: US)
  Receive Date: 20180119
  Receipt Date: 20180119
  Transmission Date: 20180509
  Serious: Yes (Hospitalization)
  Sender: FDA-Public Use
  Company Number: None

PATIENT
  Age: 69 Year
  Sex: Female
  Weight: 182.1 kg

DRUGS (11)
  1. BIOTIN [Concomitant]
     Active Substance: BIOTIN
  2. ADVIL [Concomitant]
     Active Substance: IBUPROFEN
  3. SYNTHROID [Concomitant]
     Active Substance: LEVOTHYROXINE SODIUM
  4. ATENOLOL. [Concomitant]
     Active Substance: ATENOLOL
  5. ZESTORETIC [Concomitant]
     Active Substance: HYDROCHLOROTHIAZIDE\LISINOPRIL
  6. PRILOSEC [Concomitant]
     Active Substance: OMEPRAZOLE MAGNESIUM
  7. LASIX [Concomitant]
     Active Substance: FUROSEMIDE
  8. ZANAFLEX [Concomitant]
     Active Substance: TIZANIDINE HYDROCHLORIDE
  9. OXYCODONE IR [Suspect]
     Active Substance: OXYCODONE
     Indication: ABDOMINAL PAIN UPPER
     Dosage: 10MG Q6HRS PRN SEVERE PAI PO
     Route: 048
  10. ALBUTEROL. [Suspect]
     Active Substance: ALBUTEROL
  11. OXYCODONE IR [Suspect]
     Active Substance: OXYCODONE
     Indication: ABDOMINAL PAIN UPPER
     Dosage: 5MG Q6HRS PRN MOD PAIN PO
     Route: 048

REACTIONS (4)
  - Respiratory distress [None]
  - Depressed level of consciousness [None]
  - Body temperature increased [None]
  - Hypoxia [None]

NARRATIVE: CASE EVENT DATE: 20170919
